FAERS Safety Report 7386014-0 (Version None)
Quarter: 2011Q1

REPORT INFORMATION
  Report Type: 
  Country: None (occurrence: None)
  Receive Date: 20110329
  Receipt Date: 20110329
  Transmission Date: 20110831
  Serious: Yes (Life-Threatening)
  Sender: FDA-Public Use
  Company Number: None

PATIENT
  Age: 60 Year
  Sex: Male
  Weight: 88.4514 kg

DRUGS (3)
  1. LYRICA [Suspect]
     Indication: TEMPORAL LOBE EPILEPSY
     Dosage: 150MG THREE TIMES DAILY INJ
     Dates: start: 20110121, end: 20110221
  2. LYRICA [Suspect]
     Indication: CERVICOBRACHIAL SYNDROME
     Dosage: 150MG THREE TIMES DAILY INJ
     Dates: start: 20110121, end: 20110221
  3. LYRICA [Suspect]
     Indication: MIGRAINE
     Dosage: 150MG THREE TIMES DAILY INJ
     Dates: start: 20110121, end: 20110221

REACTIONS (7)
  - MEDICATION ERROR [None]
  - FALL [None]
  - INCORRECT DOSE ADMINISTERED [None]
  - DIZZINESS [None]
  - GAIT DISTURBANCE [None]
  - DRUG PRESCRIBING ERROR [None]
  - CONFUSIONAL STATE [None]
